FAERS Safety Report 5007762-3 (Version None)
Quarter: 2006Q2

REPORT INFORMATION
  Report Type: 
  Country: None (occurrence: None)
  Receive Date: 20060522
  Receipt Date: 20060313
  Transmission Date: 20061013
  Serious: Yes (Hospitalization)
  Sender: FDA-Public Use
  Company Number: US-GLAXOSMITHKLINE-A0598446A

PATIENT
  Age: 43 Year
  Sex: Female
  Weight: 61.4 kg

DRUGS (4)
  1. ADVAIR DISKUS 100/50 [Suspect]
     Indication: ASTHMA
     Dosage: 1PUFF TWICE PER DAY
     Route: 055
     Dates: start: 20051102
  2. ALBUTEROL [Concomitant]
     Dosage: 2PUFF AS REQUIRED
     Route: 055
     Dates: start: 20050901
  3. ASMANEX [Concomitant]
  4. SINGULAIR [Concomitant]
     Dosage: 10MG AT NIGHT
     Dates: start: 20051102

REACTIONS (3)
  - ABORTION SPONTANEOUS [None]
  - DRUG EXPOSURE DURING PREGNANCY [None]
  - LYMPHADENOPATHY [None]
